FAERS Safety Report 12493337 (Version 1)
Quarter: 2016Q2

REPORT INFORMATION
  Report Type: Spontaneous
  Country: DE (occurrence: DE)
  Receive Date: 20160623
  Receipt Date: 20160623
  Transmission Date: 20160815
  Serious: Yes (Other)
  Sender: FDA-Public Use
  Company Number: DE-PFIZER INC-2016310860

PATIENT
  Age: 23 Year
  Sex: Female
  Weight: 52 kg

DRUGS (2)
  1. VENLAFAXINE HCL [Suspect]
     Active Substance: VENLAFAXINE HYDROCHLORIDE
     Indication: ANXIETY DISORDER
     Dosage: 37.5 MG, 1X/DAY, 0. - 38.1. GESTATIONAL WEEK
     Route: 048
     Dates: start: 20150509, end: 20160131
  2. FEMIBION [Concomitant]
     Active Substance: VITAMINS
     Indication: PROPHYLAXIS OF NEURAL TUBE DEFECT
     Dosage: 0.4 MG, 1X/DAY, 0. - 38.1. GESTATIONAL WEEK
     Route: 048
     Dates: start: 20150509, end: 20160131

REACTIONS (2)
  - Migraine [Unknown]
  - HELLP syndrome [Unknown]

NARRATIVE: CASE EVENT DATE: 201601
